FAERS Safety Report 6603883-X (Version None)
Quarter: 2010Q1

REPORT INFORMATION
  Report Type: 
  Country: None (occurrence: None)
  Receive Date: 20100226
  Receipt Date: 20090227
  Transmission Date: 20100710
  Serious: No
  Sender: FDA-Public Use
  Company Number: A0771568A

PATIENT
  Sex: Female

DRUGS (4)
  1. LAMICTAL CD [Suspect]
     Indication: DRUG USE FOR UNKNOWN INDICATION
     Dates: start: 20081201
  2. TOPAMAX [Suspect]
     Indication: DRUG USE FOR UNKNOWN INDICATION
     Dosage: 400MG PER DAY
  3. ATENOLOL [Suspect]
     Indication: DRUG USE FOR UNKNOWN INDICATION
     Dosage: 12.5MG PER DAY
  4. OXYCONTIN [Suspect]
     Indication: DRUG USE FOR UNKNOWN INDICATION
     Dosage: 40MG PER DAY

REACTIONS (7)
  - MOUTH INJURY [None]
  - PAIN [None]
  - SPEECH DISORDER [None]
  - SWELLING FACE [None]
  - SWOLLEN TONGUE [None]
  - TONGUE BITING [None]
  - TONSILLECTOMY [None]
